FAERS Safety Report 7846245-X (Version None)
Quarter: 2011Q4

REPORT INFORMATION
  Report Type: 
  Country: None (occurrence: None)
  Receive Date: 20111025
  Receipt Date: 20111013
  Transmission Date: 20120403
  Serious: Yes (Other)
  Sender: FDA-Public Use
  Company Number: CA-ROCHE-1006027

PATIENT
  Sex: Female

DRUGS (4)
  1. TYLENOL-500 [Suspect]
  2. ZOLOFT [Concomitant]
  3. XOLAIR [Suspect]
     Indication: ASTHMA
     Route: 058
     Dates: start: 20100225
  4. NEXIUM [Concomitant]

REACTIONS (6)
  - FIBROMYALGIA [None]
  - PRURITUS [None]
  - PRODUCTIVE COUGH [None]
  - PYREXIA [None]
  - GLOSSODYNIA [None]
  - UPPER-AIRWAY COUGH SYNDROME [None]
